FAERS Safety Report 19880568 (Version 1)
Quarter: 2021Q3

REPORT INFORMATION
  Report Type: Report from Study
  Country: CA (occurrence: CA)
  Receive Date: 20210924
  Receipt Date: 20210924
  Transmission Date: 20211014
  Serious: Yes (Hospitalization)
  Sender: FDA-Public Use
  Company Number: CA-OTSUKA-2021_016540

PATIENT
  Sex: Male

DRUGS (1)
  1. CEDAZURIDINE AND DECITABINE [Suspect]
     Active Substance: CEDAZURIDINE\DECITABINE
     Indication: MYELODYSPLASTIC SYNDROME
     Dosage: 1 DF, QD (DAYS 1?5) IN A 28 DAY CYCLE (35MG/100MG)
     Route: 048
     Dates: start: 20210322

REACTIONS (1)
  - Groin infection [Recovered/Resolved]
